FAERS Safety Report 6324221-6 (Version None)
Quarter: 2009Q3

REPORT INFORMATION
  Report Type: 
  Country: None (occurrence: None)
  Receive Date: 20090824
  Receipt Date: 20090706
  Transmission Date: 20100115
  Serious: No
  Sender: FDA-Public Use
  Company Number: US-ABBOTT-09P-163-0569664-00

PATIENT
  Sex: Female
  Weight: 99.88 kg

DRUGS (17)
  1. NIASPAN [Suspect]
     Indication: BLOOD CHOLESTEROL INCREASED
     Route: 048
     Dates: start: 20090401
  2. LASIX [Concomitant]
     Indication: DRUG USE FOR UNKNOWN INDICATION
  3. METOPROLOL [Concomitant]
     Indication: DRUG USE FOR UNKNOWN INDICATION
  4. HYDROCHLOROTHIAZIDE [Concomitant]
     Indication: DRUG USE FOR UNKNOWN INDICATION
  5. POTASSIUM CHLORIDE [Concomitant]
     Indication: DRUG USE FOR UNKNOWN INDICATION
  6. COZAAR [Concomitant]
     Indication: DRUG USE FOR UNKNOWN INDICATION
  7. PLAVIX [Concomitant]
     Indication: DRUG USE FOR UNKNOWN INDICATION
  8. ZETIA [Concomitant]
     Indication: BLOOD CHOLESTEROL INCREASED
     Dates: start: 20090401
  9. CARDIZEM [Concomitant]
     Indication: DRUG USE FOR UNKNOWN INDICATION
  10. AMITRIPTYLINE [Concomitant]
     Indication: DRUG USE FOR UNKNOWN INDICATION
  11. FISH OIL [Concomitant]
     Indication: DRUG USE FOR UNKNOWN INDICATION
  12. FLAXSEED [Concomitant]
     Indication: DRUG USE FOR UNKNOWN INDICATION
  13. METAMUCIL [Concomitant]
     Indication: DRUG USE FOR UNKNOWN INDICATION
  14. EVENING PRIMROSE [Concomitant]
     Indication: DRUG USE FOR UNKNOWN INDICATION
  15. VITAMIN B COMPLEX CAP [Concomitant]
     Indication: DRUG USE FOR UNKNOWN INDICATION
  16. CALCIUM [Concomitant]
     Indication: DRUG USE FOR UNKNOWN INDICATION
  17. ASPIRIN [Concomitant]
     Indication: PROPHYLAXIS
     Route: 048

REACTIONS (1)
  - NAUSEA [None]
